FAERS Safety Report 9283963 (Version 1)
Quarter: 2013Q2

REPORT INFORMATION
  Report Type: Spontaneous
  Country: US (occurrence: None)
  Receive Date: 20130503
  Receipt Date: 20130503
  Transmission Date: 20140414
  Serious: Yes (Other)
  Sender: FDA-Public Use
  Company Number: 1697261

PATIENT
  Age: 41 Year
  Sex: Male

DRUGS (3)
  1. GEMCITABINE [Suspect]
     Indication: CHEMOTHERAPY
  2. INVESTIGATIONAL DRUG [Suspect]
     Indication: CHEMOTHERAPY
  3. INVESTIGATIONAL DRUG [Suspect]
     Indication: PROPHYLAXIS

REACTIONS (4)
  - Atrial flutter [None]
  - Cardiac failure congestive [None]
  - Toxicity to various agents [None]
  - Cardiomyopathy [None]
